FAERS Safety Report 7807398-2 (Version None)
Quarter: 2011Q4

REPORT INFORMATION
  Report Type: 
  Country: None (occurrence: None)
  Receive Date: 20111011
  Receipt Date: 20110930
  Transmission Date: 20120403
  Serious: Yes (Hospitalization)
  Sender: FDA-Public Use
  Company Number: US-BAXTER-2011BH030853

PATIENT
  Age: 16 Year
  Sex: Male
  Weight: 123 kg

DRUGS (31)
  1. BREVIBLOC [Suspect]
     Route: 041
     Dates: start: 20110926, end: 20110927
  2. BREVIBLOC [Suspect]
     Route: 041
     Dates: start: 20110929, end: 20111002
  3. BREVIBLOC [Suspect]
     Route: 041
     Dates: start: 20111002, end: 20111003
  4. BREVIBLOC [Suspect]
     Route: 041
     Dates: start: 20111003
  5. BREVIBLOC [Suspect]
     Route: 041
     Dates: start: 20110928, end: 20110928
  6. BREVIBLOC [Suspect]
     Route: 041
     Dates: start: 20110929, end: 20111002
  7. BREVIBLOC [Suspect]
     Route: 041
     Dates: start: 20111002, end: 20111002
  8. BREVIBLOC [Suspect]
     Route: 041
     Dates: start: 20110923, end: 20110926
  9. BREVIBLOC [Suspect]
     Route: 041
     Dates: start: 20111002, end: 20111002
  10. BREVIBLOC [Suspect]
     Route: 041
     Dates: start: 20111002, end: 20111003
  11. ATENOLOL [Suspect]
     Indication: TACHYCARDIA
     Route: 048
     Dates: start: 20110930
  12. BREVIBLOC [Suspect]
     Route: 041
     Dates: start: 20110926, end: 20110927
  13. BREVIBLOC [Suspect]
     Route: 041
     Dates: start: 20110927, end: 20110928
  14. BREVIBLOC [Suspect]
     Route: 041
     Dates: start: 20110927, end: 20110928
  15. BREVIBLOC [Suspect]
     Route: 041
     Dates: start: 20110929, end: 20110929
  16. BREVIBLOC [Suspect]
     Route: 041
     Dates: start: 20110923, end: 20110923
  17. BREVIBLOC [Suspect]
     Route: 041
     Dates: start: 20110923, end: 20110926
  18. BREVIBLOC [Suspect]
     Route: 041
     Dates: start: 20110926, end: 20110926
  19. BREVIBLOC [Suspect]
     Route: 041
     Dates: start: 20110928, end: 20110928
  20. BREVIBLOC [Suspect]
     Route: 041
     Dates: start: 20111003
  21. BREVIBLOC [Suspect]
     Route: 041
     Dates: start: 20110923, end: 20110923
  22. BREVIBLOC [Suspect]
     Route: 041
     Dates: start: 20110928, end: 20110929
  23. BREVIBLOC [Suspect]
     Route: 041
     Dates: start: 20110928, end: 20110929
  24. BREVIBLOC [Suspect]
     Indication: VENTRICULAR ARRHYTHMIA
     Route: 041
     Dates: start: 20110923, end: 20110923
  25. BREVIBLOC [Suspect]
     Indication: OFF LABEL USE
     Route: 041
     Dates: start: 20110923, end: 20110923
  26. BREVIBLOC [Suspect]
     Route: 041
     Dates: start: 20110923, end: 20110923
  27. BREVIBLOC [Suspect]
     Route: 041
     Dates: start: 20111002, end: 20111002
  28. BREVIBLOC [Suspect]
     Route: 041
     Dates: start: 20110923, end: 20110923
  29. BREVIBLOC [Suspect]
     Route: 041
     Dates: start: 20110926, end: 20110926
  30. BREVIBLOC [Suspect]
     Route: 041
     Dates: start: 20110929, end: 20110929
  31. BREVIBLOC [Suspect]
     Route: 041
     Dates: start: 20111002, end: 20111002

REACTIONS (4)
  - CEREBROVASCULAR ACCIDENT [None]
  - LOSS OF CONSCIOUSNESS [None]
  - HEART RATE DECREASED [None]
  - DRUG INTOLERANCE [None]
